FAERS Safety Report 16402559 (Version 1)
Quarter: 2019Q2

REPORT INFORMATION
  Report Type: Spontaneous
  Country: US (occurrence: US)
  Receive Date: 20190607
  Receipt Date: 20190607
  Transmission Date: 20190711
  Serious: No
  Sender: FDA-Public Use
  Company Number: US-MALLINCKRODT-T201803955

PATIENT
  Sex: Male

DRUGS (1)
  1. HYDROCODONE/ACETAMINOPHEN [Suspect]
     Active Substance: ACETAMINOPHEN\HYDROCODONE
     Indication: PAIN
     Dosage: 5/325 MG, 1 TABLET EVERY 4-6 HOURS AS NEEDED
     Route: 048
     Dates: start: 201808, end: 20180906

REACTIONS (5)
  - Fatigue [Unknown]
  - Product dose omission [Unknown]
  - Somnolence [Unknown]
  - Dyshidrotic eczema [Unknown]
  - Pruritus [Unknown]
